FAERS Safety Report 8141048-3 (Version None)
Quarter: 2012Q1

REPORT INFORMATION
  Report Type: 
  Country: None (occurrence: None)
  Receive Date: 20120216
  Receipt Date: 20120208
  Transmission Date: 20120608
  Serious: Yes (Hospitalization)
  Sender: FDA-Public Use
  Company Number: BR-ABBOTT-12P-020-0903222-00

PATIENT
  Sex: Male

DRUGS (4)
  1. AKINETON [Suspect]
     Indication: PROPHYLAXIS
     Dosage: 2 TABS IN MORNING AND 2 TABS AT NIGHT
     Route: 048
     Dates: start: 19970101
  2. AKINETON [Suspect]
     Dosage: 2 TABS IN MORNING AND 2 TABS AT NIGHT
     Route: 048
  3. CLOQUIXOL [Suspect]
     Indication: SCHIZOPHRENIA
     Dosage: 1 TAB THE MORNING AND 1 IN THE AFTERNOON
     Route: 048
     Dates: start: 19970101
  4. LORAZEPAM [Concomitant]
     Indication: ANXIOLYTIC THERAPY
     Dosage: 1 AT MIDDAY, 1 IN THE AFTERNOON, 1 MIDDAY, 1 AFTERNOON, 2 NIGHT
     Route: 048
     Dates: start: 19970101

REACTIONS (2)
  - SCHIZOPHRENIA [None]
  - TREMOR [None]
